FAERS Safety Report 6039946-X (Version None)
Quarter: 2009Q1

REPORT INFORMATION
  Report Type: 
  Country: None (occurrence: None)
  Receive Date: 20090116
  Receipt Date: 20080227
  Transmission Date: 20090719
  Serious: No
  Sender: FDA-Public Use
  Company Number: US-BRISTOL-MYERS SQUIBB COMPANY-13953914

PATIENT
  Age: 13 Year
  Sex: Female
  Weight: 52 kg

DRUGS (3)
  1. ABILIFY [Suspect]
     Indication: IMPULSE-CONTROL DISORDER
     Route: 048
     Dates: start: 20060401, end: 20060424
  2. SYMBYAX [Suspect]
     Indication: OPPOSITIONAL DEFIANT DISORDER
     Dosage: 1 DOSAGE FORM = 6/25 UNITS NOT SPECIFIED
     Route: 048
     Dates: start: 20060401, end: 20060424
  3. ADDERALL 10 [Concomitant]
     Dates: start: 20041209

REACTIONS (5)
  - EYE MOVEMENT DISORDER [None]
  - MOOD SWINGS [None]
  - MUSCULOSKELETAL STIFFNESS [None]
  - NEUROMYOPATHY [None]
  - TONGUE PARALYSIS [None]
